FAERS Safety Report 12478625 (Version 1)
Quarter: 2016Q2

REPORT INFORMATION
  Report Type: Spontaneous
  Country: US (occurrence: US)
  Receive Date: 20160619
  Receipt Date: 20160619
  Transmission Date: 20160815
  Serious: Yes (Other)
  Sender: FDA-Public Use
  Company Number: US-ENDO PHARMACEUTICALS INC.-2016-002503

PATIENT
  Sex: Male

DRUGS (1)
  1. OPANA ER [Suspect]
     Active Substance: OXYMORPHONE HYDROCHLORIDE
     Indication: BACK INJURY
     Route: 045

REACTIONS (3)
  - Wrong technique in product usage process [Unknown]
  - Intentional product use issue [Unknown]
  - Drug dependence [Unknown]
